FAERS Safety Report 16207330 (Version 4)
Quarter: 2019Q3

REPORT INFORMATION
  Report Type: Report from Study
  Country: GB (occurrence: GB)
  Receive Date: 20190417
  Receipt Date: 20190704
  Transmission Date: 20191004
  Serious: Yes (Other)
  Sender: FDA-Public Use
  Company Number: PHHY2019GB088465

PATIENT
  Sex: Male

DRUGS (3)
  1. HYRIMOZ [Suspect]
     Active Substance: ADALIMUMAB-ADAZ
     Indication: RHEUMATOID ARTHRITIS
     Dosage: Q2W, (PRE FILLED PEN)
     Route: 058
     Dates: start: 20190329
  2. HYRIMOZ [Suspect]
     Active Substance: ADALIMUMAB-ADAZ
     Dosage: Q2W, (PRE FILLED PEN)
     Route: 058
  3. ANTIACID [Concomitant]
     Indication: GASTROOESOPHAGEAL REFLUX DISEASE
     Route: 065

REACTIONS (6)
  - Arthralgia [Unknown]
  - Headache [Recovered/Resolved]
  - Tinnitus [Unknown]
  - Sinus pain [Not Recovered/Not Resolved]
  - Gastrooesophageal reflux disease [Unknown]
  - Concomitant disease aggravated [Unknown]
